FAERS Safety Report 12261016 (Version 1)
Quarter: 2016Q2

REPORT INFORMATION
  Report Type: Spontaneous
  Country: US (occurrence: US)
  Receive Date: 20160412
  Receipt Date: 20160412
  Transmission Date: 20160815
  Serious: No
  Sender: FDA-Public Use
  Company Number: US-INCYTE CORPORATION-2016IN000789

PATIENT
  Age: 66 Year
  Sex: Male

DRUGS (1)
  1. JAKAFI [Suspect]
     Active Substance: RUXOLITINIB
     Indication: MYELOFIBROSIS
     Dosage: 20 MG, BID
     Route: 048
     Dates: start: 20141024, end: 20160206

REACTIONS (5)
  - Feeling abnormal [Unknown]
  - Feeling cold [Unknown]
  - Abdominal pain upper [Unknown]
  - Drug dose omission [Unknown]
  - Lethargy [Unknown]

NARRATIVE: CASE EVENT DATE: 20160206
